FAERS Safety Report 16733804 (Version 1)
Quarter: 2019Q3

REPORT INFORMATION
  Report Type: Spontaneous
  Country: US (occurrence: US)
  Receive Date: 20190823
  Receipt Date: 20190823
  Transmission Date: 20191005
  Serious: No
  Sender: FDA-Public Use
  Company Number: US-PAREXEL-2018US012024

PATIENT

DRUGS (1)
  1. ELIGARD [Suspect]
     Active Substance: LEUPROLIDE ACETATE
     Indication: PROSTATE CANCER
     Dosage: 45MG (6 MONTH DOSE)
     Route: 058
     Dates: start: 20181128

REACTIONS (3)
  - Intercepted medication error [Unknown]
  - Syringe issue [Unknown]
  - Product leakage [Unknown]

NARRATIVE: CASE EVENT DATE: 20181128
